FAERS Safety Report 17650419 (Version 2)
Quarter: 2020Q2

REPORT INFORMATION
  Report Type: Spontaneous
  Country: US (occurrence: US)
  Receive Date: 20200409
  Receipt Date: 20200416
  Transmission Date: 20200713
  Serious: Yes (Other)
  Sender: FDA-Public Use
  Company Number: US-HIKMA PHARMACEUTICALS USA INC.-US-H14001-20-01533

PATIENT
  Age: 64 Year
  Sex: Female

DRUGS (2)
  1. BOSENTAN. [Suspect]
     Active Substance: BOSENTAN
     Indication: PULMONARY HYPERTENSION
     Route: 048
     Dates: start: 201004, end: 20200402
  2. BOSENTAN. [Suspect]
     Active Substance: BOSENTAN
     Indication: CREST SYNDROME

REACTIONS (5)
  - Liver disorder [Unknown]
  - Hepatic cirrhosis [Unknown]
  - Abdominal pain upper [Unknown]
  - Biopsy [Unknown]
  - Liver function test abnormal [Unknown]

NARRATIVE: CASE EVENT DATE: 20191221
